FAERS Safety Report 5494186-8 (Version None)
Quarter: 2007Q4

REPORT INFORMATION
  Report Type: 
  Country: None (occurrence: None)
  Receive Date: 20071024
  Receipt Date: 20071015
  Transmission Date: 20080405
  Serious: Yes (Other)
  Sender: FDA-Public Use
  Company Number: PHBS2007NO17080

PATIENT
  Age: 70 Year
  Sex: Male

DRUGS (3)
  1. VOLTAREN [Suspect]
     Indication: TENDONITIS
     Dosage: 200 MG IN TOTAL DURING 14 HOURS
  2. MAREVAN [Concomitant]
  3. DIGOXIN [Concomitant]

REACTIONS (2)
  - AMNESIA [None]
  - CONFUSIONAL STATE [None]
